FAERS Safety Report 21611842 (Version 1)
Quarter: 2022Q4

REPORT INFORMATION
  Report Type: Spontaneous
  Country: US (occurrence: US)
  Receive Date: 20221117
  Receipt Date: 20221117
  Transmission Date: 20230113
  Serious: No
  Sender: FDA-Public Use
  Company Number: US-PURDUE PHARMA-USA-2022-0295924

PATIENT
  Age: 65 Year
  Sex: Female
  Weight: 102.06 kg

DRUGS (1)
  1. MORPHINE SULFATE [Suspect]
     Active Substance: MORPHINE SULFATE
     Indication: Arthritis
     Dosage: 30 MILLIGRAM, QID
     Route: 048

REACTIONS (2)
  - Drug withdrawal syndrome [Unknown]
  - Migraine [Unknown]
